FAERS Safety Report 10855148 (Version 1)
Quarter: 2015Q1

REPORT INFORMATION
  Report Type: Spontaneous
  Country: AU (occurrence: AU)
  Receive Date: 20150223
  Receipt Date: 20150223
  Transmission Date: 20150721
  Serious: Yes (Death)
  Sender: FDA-Public Use
  Company Number: AU-SA-2015SA020464

PATIENT
  Age: 77 Year
  Sex: Male
  Weight: 67 kg

DRUGS (8)
  1. PYRIDOXINE [Concomitant]
     Active Substance: PYRIDOXINE
     Dates: start: 20150107
  2. ISONIAZID. [Concomitant]
     Active Substance: ISONIAZID
     Indication: EXPOSURE TO COMMUNICABLE DISEASE
     Dates: start: 20150107
  3. GENTAMICIN. [Concomitant]
     Active Substance: GENTAMICIN
     Indication: FEBRILE NEUTROPENIA
  4. VANCOMYCIN [Concomitant]
     Active Substance: VANCOMYCIN
  5. ALEMTUZUMAB [Suspect]
     Active Substance: ALEMTUZUMAB
     Indication: T-CELL PROLYMPHOCYTIC LEUKAEMIA
     Route: 042
     Dates: start: 20141211, end: 20150204
  6. TAZOCIN [Concomitant]
     Active Substance: PIPERACILLIN SODIUM\TAZOBACTAM SODIUM
     Indication: FEBRILE NEUTROPENIA
  7. MEROPENEM. [Concomitant]
     Active Substance: MEROPENEM
  8. VALGANCICLOVIR [Concomitant]
     Active Substance: VALGANCICLOVIR
     Indication: CYTOMEGALOVIRUS TEST POSITIVE
     Dates: start: 20150116

REACTIONS (2)
  - Histiocytosis haematophagic [Fatal]
  - Multi-organ failure [Fatal]

NARRATIVE: CASE EVENT DATE: 20150204
